FAERS Safety Report 22026482 (Version 1)
Quarter: 2023Q1

REPORT INFORMATION
  Report Type: Spontaneous
  Country: US (occurrence: None)
  Receive Date: 20230223
  Receipt Date: 20230223
  Transmission Date: 20230417
  Serious: Yes (Other)
  Sender: FDA-Public Use
  Company Number: US-ROCHE-3179060

PATIENT
  Sex: Male
  Weight: 109.41 kg

DRUGS (8)
  1. XOLAIR [Suspect]
     Active Substance: OMALIZUMAB
     Indication: Urticaria
     Dosage: ONGOING - YES
     Route: 058
  2. XOLAIR [Suspect]
     Active Substance: OMALIZUMAB
  3. XOLAIR [Suspect]
     Active Substance: OMALIZUMAB
  4. XOLAIR [Suspect]
     Active Substance: OMALIZUMAB
     Dosage: ONGOING - NO
     Route: 058
     Dates: start: 2021
  5. XOLAIR [Suspect]
     Active Substance: OMALIZUMAB
  6. XOLAIR [Suspect]
     Active Substance: OMALIZUMAB
  7. CETIRIZINE HYDROCHLORIDE [Concomitant]
     Active Substance: CETIRIZINE HYDROCHLORIDE
     Indication: Urticaria
  8. RANEXA [Concomitant]
     Active Substance: RANOLAZINE
     Indication: Chest pain
     Dosage: TAKES THREE 500MG PILLS A DAY
     Route: 048

REACTIONS (6)
  - Skin cancer [Unknown]
  - Hyperparathyroidism [Not Recovered/Not Resolved]
  - Product dose omission issue [Unknown]
  - Exposure via skin contact [Unknown]
  - Product complaint [Unknown]
  - Device issue [Unknown]

NARRATIVE: CASE EVENT DATE: 20220911
